FAERS Safety Report 8398321 (Version 2)
Quarter: 2019Q2

REPORT INFORMATION
  Report Type: Spontaneous
  Country: CA (occurrence: CA)
  Receive Date: 20120209
  Receipt Date: 20190405
  Transmission Date: 20190711
  Serious: Yes (Death, Other)
  Sender: FDA-Public Use
  Company Number: CA-MYLANLABS-2012S1002395

PATIENT
  Age: 64 Year
  Sex: Female

DRUGS (5)
  1. FERROUS SULFATE. [Suspect]
     Active Substance: FERROUS SULFATE
     Indication: END STAGE RENAL DISEASE
     Dosage: UNK
     Route: 065
  2. PREDNISONE. [Suspect]
     Active Substance: PREDNISONE
     Indication: END STAGE RENAL DISEASE
     Route: 065
  3. IRON [Suspect]
     Active Substance: IRON
     Indication: END STAGE RENAL DISEASE
     Route: 065
  4. WARFARIN [Suspect]
     Active Substance: WARFARIN
     Indication: END STAGE RENAL DISEASE
     Dosage: UNK
     Route: 065
  5. CALCIUM [Suspect]
     Active Substance: CALCIUM
     Indication: END STAGE RENAL DISEASE
     Route: 065

REACTIONS (2)
  - Biliary sepsis [Fatal]
  - Calciphylaxis [Not Recovered/Not Resolved]
